FAERS Safety Report 23672156 (Version 1)
Quarter: 2024Q1

REPORT INFORMATION
  Report Type: Spontaneous
  Country: US (occurrence: US)
  Receive Date: 20240326
  Receipt Date: 20240326
  Transmission Date: 20240410
  Serious: No
  Sender: FDA-Public Use
  Company Number: US-ALCON LABORATORIES-ALC2024US000775

PATIENT
  Sex: Female

DRUGS (1)
  1. PATADAY ONCE DAILY RELIEF [Suspect]
     Active Substance: OLOPATADINE HYDROCHLORIDE
     Indication: Eye allergy
     Dosage: USED ONLY ONCE
     Route: 047

REACTIONS (3)
  - Hypoaesthesia eye [Not Recovered/Not Resolved]
  - Vision blurred [Recovering/Resolving]
  - Eye pain [Not Recovered/Not Resolved]
